FAERS Safety Report 4276681-2 (Version None)
Quarter: 2004Q1

REPORT INFORMATION
  Report Type: 
  Country: None (occurrence: None)
  Receive Date: 20040120
  Receipt Date: 20040107
  Transmission Date: 20041129
  Serious: Yes (Death, Hospitalization)
  Sender: FDA-Public Use
  Company Number: HQWYE201508JAN04

PATIENT
  Age: 39 Year
  Sex: Female

DRUGS (1)
  1. EFFEXOR XR [Suspect]
     Dosage: OVERDOSE AMOUNT-APPROXIMATELY 30 G, ORAL
     Route: 048

REACTIONS (18)
  - ABDOMINAL ABSCESS [None]
  - CARDIAC INDEX DECREASED [None]
  - CHROMOSOME ABNORMALITY [None]
  - CONVULSION [None]
  - DEPRESSED LEVEL OF CONSCIOUSNESS [None]
  - GASTROINTESTINAL MOTILITY DISORDER [None]
  - HYPOTENSION [None]
  - INTENTIONAL OVERDOSE [None]
  - INTESTINAL INFARCTION [None]
  - INTESTINAL ISCHAEMIA [None]
  - INTESTINAL PERFORATION [None]
  - LARGE INTESTINE PERFORATION [None]
  - MEDICATION RESIDUE [None]
  - MYOCLONUS [None]
  - PNEUMATOSIS CYSTOIDES INTESTINALIS [None]
  - PYREXIA [None]
  - VASCULAR RESISTANCE SYSTEMIC DECREASED [None]
  - VENTRICULAR TACHYCARDIA [None]
